FAERS Safety Report 10555562 (Version 2)
Quarter: 2014Q4

REPORT INFORMATION
  Report Type: Spontaneous
  Country: US (occurrence: US)
  Receive Date: 20141030
  Receipt Date: 20141219
  Transmission Date: 20150529
  Serious: Yes (Hospitalization, Other)
  Sender: FDA-Public Use
  Company Number: US-PFIZER INC-2014294227

PATIENT
  Age: 5 Month
  Sex: Female

DRUGS (2)
  1. NEURONTIN [Suspect]
     Active Substance: GABAPENTIN
     Indication: PAIN
     Dosage: UNK
  2. NAPROXEN SODIUM. [Suspect]
     Active Substance: NAPROXEN SODIUM
     Dosage: UNK

REACTIONS (10)
  - Anaemia [Unknown]
  - Inflammatory marker increased [Unknown]
  - Childhood disintegrative disorder [Unknown]
  - Arthralgia [Unknown]
  - Drug ineffective [Unknown]
  - Extremity contracture [Unknown]
  - Swelling [Unknown]
  - Movement disorder [Unknown]
  - Head lag [Unknown]
  - Joint warmth [Unknown]
